FAERS Safety Report 5443043-1 (Version None)
Quarter: 2007Q3

REPORT INFORMATION
  Report Type: 
  Country: None (occurrence: None)
  Receive Date: 20070905
  Receipt Date: 20070831
  Transmission Date: 20080115
  Serious: Yes (Hospitalization)
  Sender: FDA-Public Use
  Company Number: US-BRISTOL-MYERS SQUIBB COMPANY-13890355

PATIENT
  Age: 79 Year
  Sex: Male
  Weight: 108 kg

DRUGS (18)
  1. CETUXIMAB [Suspect]
     Indication: HEPATIC NEOPLASM MALIGNANT
     Dosage: 400 MG/M2 ON 10-AUG-2007
     Route: 042
     Dates: start: 20070817, end: 20070817
  2. OXALIPLATIN [Suspect]
     Indication: HEPATIC NEOPLASM MALIGNANT
     Route: 042
     Dates: start: 20070810
  3. CAPECITABINE [Suspect]
     Indication: HEPATIC NEOPLASM MALIGNANT
  4. PROCHLORPERAZINE [Concomitant]
  5. SPIRONOLACTONE [Concomitant]
  6. THORAZINE [Concomitant]
  7. ACIPHEX [Concomitant]
  8. IMODIUM [Concomitant]
  9. LOPRESSOR [Concomitant]
  10. PHENERGAN HCL [Concomitant]
  11. AVODART [Concomitant]
  12. LISINOPRIL AND HYDROCHLOROTHIAZIDE [Concomitant]
  13. MEGACE [Concomitant]
  14. QUESTRAN [Concomitant]
  15. IRON [Concomitant]
  16. FUROSEMIDE [Concomitant]
  17. OPIUM TINCTURE [Concomitant]
  18. ZOFRAN [Concomitant]

REACTIONS (6)
  - DEHYDRATION [None]
  - DIARRHOEA [None]
  - HYPERKALAEMIA [None]
  - MUCOSAL INFLAMMATION [None]
  - PANCREATITIS [None]
  - URINARY TRACT INFECTION [None]
